FAERS Safety Report 10228723 (Version 1)
Quarter: 2014Q2

REPORT INFORMATION
  Report Type: Spontaneous
  Country: DE (occurrence: DE)
  Receive Date: 20140610
  Receipt Date: 20140610
  Transmission Date: 20141212
  Serious: Yes (Other)
  Sender: FDA-Public Use
  Company Number: DE-WATSON-2014-11805

PATIENT
  Age: 49 Year
  Sex: 0

DRUGS (1)
  1. DOBUTAMINE HYDROCHLORIDE (WATSON LABORATORIES) [Suspect]
     Indication: CARDIAC OUTPUT DECREASED
     Dosage: UNKNOWN
     Route: 065

REACTIONS (1)
  - Left ventricle outflow tract obstruction [Recovering/Resolving]
